FAERS Safety Report 5242192-0 (Version None)
Quarter: 2007Q1

REPORT INFORMATION
  Report Type: 
  Country: None (occurrence: None)
  Receive Date: 20070213
  Receipt Date: 20070131
  Transmission Date: 20070707
  Serious: Yes (Hospitalization)
  Sender: FDA-Public Use
  Company Number: WAES 0701MYS00002

PATIENT
  Age: 69 Year
  Sex: Female

DRUGS (5)
  1. HYZAAR [Suspect]
     Indication: ESSENTIAL HYPERTENSION
     Dosage: 50-12.5 MG/DAILY PO
     Route: 048
     Dates: start: 20061219, end: 20070104
  2. HYZAAR [Suspect]
     Indication: ESSENTIAL HYPERTENSION
     Dosage: 50-12.5 MG/DAILY PO
     Route: 048
     Dates: start: 20070107, end: 20070118
  3. ENALAPRIL MALEATE [Concomitant]
  4. GLYBURIDE [Concomitant]
  5. METFORMIN HCL [Concomitant]

REACTIONS (4)
  - DIZZINESS [None]
  - NAUSEA [None]
  - NEPHROPATHY [None]
  - VESTIBULAR NEURONITIS [None]
